FAERS Safety Report 4657992-5 (Version None)
Quarter: 2005Q2

REPORT INFORMATION
  Report Type: 
  Country: None (occurrence: None)
  Receive Date: 20050505
  Receipt Date: 20050323
  Transmission Date: 20051028
  Serious: No
  Sender: FDA-Public Use
  Company Number: 2005USFACT00437

PATIENT
  Age: 59 Year
  Sex: Female
  Weight: 70.7 kg

DRUGS (1)
  1. FACTIVE [Suspect]
     Indication: RESPIRATORY TRACT INFECTION BACTERIAL

REACTIONS (1)
  - RASH GENERALISED [None]
